FAERS Safety Report 9506005 (Version 1)
Quarter: 2013Q1

REPORT INFORMATION
  Report Type: Spontaneous
  Country: US (occurrence: None)
  Receive Date: 20130305
  Receipt Date: 20130305
  Transmission Date: 20140127
  Serious: Yes (Other)
  Sender: FDA-Public Use
  Company Number: PHEH2013US001937

PATIENT
  Sex: 0

DRUGS (1)
  1. ZORTRESS [Suspect]
     Dosage: 1 MG, BID (12 HOURLY)

REACTIONS (1)
  - Transplant rejection [None]
